FAERS Safety Report 9141085 (Version 2)
Quarter: 2013Q1

REPORT INFORMATION
  Report Type: Spontaneous
  Country: AU (occurrence: AU)
  Receive Date: 20130305
  Receipt Date: 20130328
  Transmission Date: 20140127
  Serious: Yes (Death)
  Sender: FDA-Public Use
  Company Number: AU-B.I. PHARMACEUTICALS,INC./RIDGEFIELD-2013-AU-00233AU

PATIENT
  Sex: Male

DRUGS (17)
  1. PRADAXA [Suspect]
     Indication: CEREBROVASCULAR ACCIDENT PROPHYLAXIS
     Dosage: 220 MG
     Route: 048
     Dates: start: 20111017, end: 201301
  2. PRADAXA [Suspect]
     Indication: ATRIAL FIBRILLATION
     Dosage: 150 MG
     Dates: start: 201301
  3. ALPRIM [Concomitant]
     Dosage: 300 MG
     Route: 048
  4. AVANZA [Concomitant]
     Indication: DEPRESSION
     Dosage: 60 MG
     Route: 048
  5. BISPRO [Concomitant]
     Dosage: 10 MG
     Route: 048
  6. COLGOUT [Concomitant]
     Dosage: 1000 MCG
     Route: 048
  7. BURINEX [Concomitant]
     Dosage: 2 MG
     Route: 048
  8. DURIDE SR [Concomitant]
     Dosage: 60 MG
     Route: 048
  9. FERRO-F-TAB [Concomitant]
     Dosage: 310MG/350 MCG
     Route: 048
  10. FISH OIL [Concomitant]
     Route: 048
  11. GLICLAZIDE SR [Concomitant]
     Dosage: 120 MG
     Route: 048
  12. GLUCOSAMINE HYDROCHLORIDE [Concomitant]
     Dosage: 3000 MG
     Route: 048
  13. GLYCERIL TRINITRATE [Concomitant]
     Dosage: SPRAY 1 PRN
     Route: 060
  14. LASIX [Concomitant]
     Dosage: 80 MG
     Route: 048
  15. NORSPAN [Concomitant]
     Indication: PAIN
     Dosage: 0.7143 MG
     Route: 062
  16. PANADOL OSTEO [Concomitant]
     Dosage: 2660 MG
     Route: 048
  17. POTASSIUM PERMANGANATE [Concomitant]
     Indication: STAPHYLOCOCCUS TEST
     Dosage: 1 TEASPOON CRYSTALS IN 200-500 MLS WATER

REACTIONS (5)
  - Diabetic complication [Fatal]
  - Renal failure [Fatal]
  - Lactic acidosis [Fatal]
  - Contusion [Recovered/Resolved]
  - Skin ulcer [Unknown]
